FAERS Safety Report 9861218 (Version 1)
Quarter: 2014Q1

REPORT INFORMATION
  Report Type: Spontaneous
  Country: US (occurrence: None)
  Receive Date: 20140131
  Receipt Date: 20140131
  Transmission Date: 20141002
  Serious: Yes (Other)
  Sender: FDA-Public Use
  Company Number: None

PATIENT
  Age: 10 Year
  Sex: Male
  Weight: 29.94 kg

DRUGS (4)
  1. METHYLPHENIDATE HCL EXTENDED-REL [Suspect]
     Indication: ATTENTION DEFICIT/HYPERACTIVITY DISORDER
     Route: 048
     Dates: start: 20131216, end: 20131219
  2. METHYLPHENIDATE HCL EXTENDED-REL [Suspect]
     Indication: OPPOSITIONAL DEFIANT DISORDER
     Route: 048
     Dates: start: 20131216, end: 20131219
  3. CONCERTA [Concomitant]
  4. GUANFACINE [Concomitant]

REACTIONS (6)
  - Drug ineffective [None]
  - Attention deficit/hyperactivity disorder [None]
  - Condition aggravated [None]
  - Oppositional defiant disorder [None]
  - Product substitution issue [None]
  - Product quality issue [None]
